FAERS Safety Report 7242908-8 (Version None)
Quarter: 2011Q1

REPORT INFORMATION
  Report Type: 
  Country: None (occurrence: None)
  Receive Date: 20110125
  Receipt Date: 20110118
  Transmission Date: 20110831
  Serious: Yes (Life-Threatening, Hospitalization, Other)
  Sender: FDA-Public Use
  Company Number: KR-JNJFOC-20101101688

PATIENT
  Age: 52 Year
  Sex: Male

DRUGS (1)
  1. DURAGESIC-100 [Suspect]
     Indication: NECK PAIN
     Route: 062

REACTIONS (6)
  - CEREBROVASCULAR ACCIDENT [None]
  - APNOEA [None]
  - RESPIRATORY ACIDOSIS [None]
  - DRUG ABUSE [None]
  - COMA [None]
  - DRUG ADMINISTERED AT INAPPROPRIATE SITE [None]
